FAERS Safety Report 9861003 (Version 1)
Quarter: 2014Q1

REPORT INFORMATION
  Report Type: Spontaneous
  Country: BR (occurrence: BR)
  Receive Date: 20140202
  Receipt Date: 20140202
  Transmission Date: 20141002
  Serious: No
  Sender: FDA-Public Use
  Company Number: BR-ALLERGAN-1302843US

PATIENT
  Sex: Female

DRUGS (1)
  1. BOTOX [Suspect]
     Indication: SKIN WRINKLING
     Dosage: UNK
     Dates: start: 20130130, end: 20130130

REACTIONS (2)
  - Vision blurred [Unknown]
  - Diplopia [Unknown]
